FAERS Safety Report 21000247 (Version 1)
Quarter: 2022Q2

REPORT INFORMATION
  Report Type: Spontaneous
  Country: DE (occurrence: DE)
  Receive Date: 20220623
  Receipt Date: 20220623
  Transmission Date: 20220720
  Serious: Yes (Other)
  Sender: FDA-Public Use
  Company Number: None

PATIENT
  Age: 68 Year
  Sex: Male

DRUGS (7)
  1. CLOZAPINE [Suspect]
     Active Substance: CLOZAPINE
     Indication: Product used for unknown indication
     Dosage: 0-150MG A DAY,?FAST DOSE INCREASE OF CLOZAPINE IN 25MG STEPS UP TO 150MG.
     Route: 048
     Dates: start: 20220101, end: 20220429
  2. MOVICOL [Concomitant]
     Active Substance: POLYETHYLENE GLYCOL 3350\POTASSIUM CHLORIDE\SODIUM BICARBONATE\SODIUM CHLORIDE
     Indication: Product used for unknown indication
     Dosage: INTAKE FOR MONTHS, UNIT DOSE: 2 DF, FREQUENCY : 1 DAYS
     Route: 048
  3. NALOXONE HYDROCHLORIDE\OXYCODONE HYDROCHLORIDE [Concomitant]
     Active Substance: NALOXONE HYDROCHLORIDE\OXYCODONE HYDROCHLORIDE
     Indication: Product used for unknown indication
     Dosage: INTAKE FOR MONTHS, UNIT DOSE: 1 DF, FREQUENCY : 1 DAYS, 30/15 MG A DAY; TARGIN 30/15MG
     Route: 048
  4. LORAZEPAM [Concomitant]
     Active Substance: LORAZEPAM
     Indication: Product used for unknown indication
     Dosage: UNIT DOSE: 1.5 MG, FREQUENCY : 1 DAYS
     Route: 048
     Dates: start: 20220101
  5. FOLIC ACID [Concomitant]
     Active Substance: FOLIC ACID
     Indication: Product used for unknown indication
     Dosage: INTAKE FOR MONTHS, UNIT DOSE: 5 MG, FREQUENCY : 1 DAYS
     Route: 048
  6. TORSEMIDE [Concomitant]
     Active Substance: TORSEMIDE
     Indication: Product used for unknown indication
     Dosage: INTAKE FOR MONTHS, UNIT DOSE: 20 MG, FREQUENCY : 1 DAYS
     Route: 048
  7. CALCIUM [Concomitant]
     Active Substance: CALCIUM
     Indication: Product used for unknown indication
     Dosage: UNIT DOSE: 400 IU FREQUENCY : 1 DAYS INTAKE FOR MONTHS

REACTIONS (1)
  - Hepatic enzyme increased [Recovered/Resolved]

NARRATIVE: CASE EVENT DATE: 20220208
